FAERS Safety Report 25132956 (Version 1)
Quarter: 2025Q1

REPORT INFORMATION
  Report Type: Spontaneous
  Country: GB (occurrence: GB)
  Receive Date: 20250328
  Receipt Date: 20250328
  Transmission Date: 20250409
  Serious: Yes (Other)
  Sender: NOVO NORDISK
  Company Number: None

PATIENT
  Age: 66 Year

DRUGS (9)
  1. RYBELSUS [Suspect]
     Active Substance: SEMAGLUTIDE
  2. RYBELSUS [Suspect]
     Active Substance: SEMAGLUTIDE
  3. RYBELSUS [Suspect]
     Active Substance: SEMAGLUTIDE
     Indication: Diabetes mellitus
  4. ASPIRIN [Concomitant]
     Active Substance: ASPIRIN
  5. RAMIPRIL [Concomitant]
     Active Substance: RAMIPRIL
  6. BISOPROLOL [Concomitant]
     Active Substance: BISOPROLOL
  7. INDAPAMIDE [Concomitant]
     Active Substance: INDAPAMIDE
  8. LANSOPRAZOLE [Concomitant]
     Active Substance: LANSOPRAZOLE
  9. METFORMIN [Concomitant]
     Active Substance: METFORMIN HYDROCHLORIDE

REACTIONS (3)
  - Musculoskeletal chest pain [Not Recovered/Not Resolved]
  - Drug intolerance [Unknown]
  - Abdominal discomfort [Unknown]
